FAERS Safety Report 5649213-1 (Version None)
Quarter: 2008Q1

REPORT INFORMATION
  Report Type: 
  Country: None (occurrence: None)
  Receive Date: 20080304
  Receipt Date: 20071126
  Transmission Date: 20080703
  Serious: No
  Sender: FDA-Public Use
  Company Number: US-BAYER-200714796NA

PATIENT
  Age: 58 Year
  Sex: Female
  Weight: 73 kg

DRUGS (1)
  1. ULTRAVIST (PHARMACY BULK) [Suspect]
     Indication: ABDOMINAL PAIN
     Route: 042
     Dates: start: 20071121, end: 20071121

REACTIONS (4)
  - EYE OEDEMA [None]
  - EYE PAIN [None]
  - OCULAR HYPERAEMIA [None]
  - URTICARIA [None]
